FAERS Safety Report 23956763 (Version 1)
Quarter: 2024Q2

REPORT INFORMATION
  Report Type: Spontaneous
  Country: US (occurrence: None)
  Receive Date: 20240608
  Receipt Date: 20240608
  Transmission Date: 20240716
  Serious: Yes (Hospitalization)
  Sender: FDA-Public Use
  Company Number: None

PATIENT
  Age: 68 Year
  Sex: Male
  Weight: 105 kg

DRUGS (2)
  1. CEFAZOLIN SODIUM [Suspect]
     Active Substance: CEFAZOLIN SODIUM
     Indication: Surgery
     Dosage: 2 GM ONCE IV
     Route: 042
     Dates: start: 20240529, end: 20240529
  2. AMLODIPINE BESYLATE\BENAZEPRIL HYDROCHLORIDE [Suspect]
     Active Substance: AMLODIPINE BESYLATE\BENAZEPRIL HYDROCHLORIDE
     Indication: Hypertension
     Dosage: 1 TAB EVERY DAY PO?
     Route: 048
     Dates: start: 20240525, end: 20240529

REACTIONS (2)
  - Anaphylactic reaction [None]
  - Angioedema [None]

NARRATIVE: CASE EVENT DATE: 20240529
